FAERS Safety Report 4881814-0 (Version None)
Quarter: 2006Q1

REPORT INFORMATION
  Report Type: 
  Country: None (occurrence: None)
  Receive Date: 20060112
  Receipt Date: 20060112
  Transmission Date: 20060701
  Serious: Yes (Hospitalization)
  Sender: FDA-Public Use
  Company Number: None

PATIENT
  Age: 48 Year
  Sex: Male

DRUGS (1)
  1. BIAXIN [Suspect]
     Indication: RESPIRATORY TRACT INFECTION
     Dosage: PO
     Route: 048

REACTIONS (1)
  - ANGIONEUROTIC OEDEMA [None]
